FAERS Safety Report 15494625 (Version 2)
Quarter: 2020Q1

REPORT INFORMATION
  Report Type: Spontaneous
  Country: FR (occurrence: FR)
  Receive Date: 20181012
  Receipt Date: 20200227
  Transmission Date: 20200409
  Serious: Yes (Other)
  Sender: FDA-Public Use
  Company Number: PHHY2018FR119376

PATIENT
  Age: 11 Year
  Sex: Female

DRUGS (7)
  1. PLITICAN [Suspect]
     Active Substance: ALIZAPRIDE HYDROCHLORIDE
     Indication: PROPHYLAXIS OF NAUSEA AND VOMITING
     Dosage: UNK
     Route: 042
     Dates: start: 20180627, end: 201808
  2. VINCRISTINE [Suspect]
     Active Substance: VINCRISTINE
     Indication: EMBRYONAL RHABDOMYOSARCOMA
     Dosage: 2 MG, CYCLIC
     Route: 040
     Dates: start: 20180627, end: 20180829
  3. DEXAMETHASONE. [Suspect]
     Active Substance: DEXAMETHASONE
     Indication: PROPHYLAXIS OF NAUSEA AND VOMITING
     Dosage: UNK
     Route: 042
     Dates: start: 20180627, end: 201808
  4. HOLOXAN [Suspect]
     Active Substance: IFOSFAMIDE
     Indication: EMBRYONAL RHABDOMYOSARCOMA
     Dosage: 4600 MG, CYCLIC
     Route: 041
     Dates: start: 20180627, end: 20180829
  5. COSMEGEN [Suspect]
     Active Substance: DACTINOMYCIN
     Indication: EMBRYONAL RHABDOMYOSARCOMA
     Dosage: 2 MG, CYCLIC
     Route: 040
     Dates: start: 20180627, end: 20180829
  6. ZOPHREN [Suspect]
     Active Substance: ONDANSETRON
     Indication: PROPHYLAXIS OF NAUSEA AND VOMITING
     Dosage: UNK
     Route: 048
     Dates: start: 20180627, end: 201808
  7. MESNA. [Concomitant]
     Active Substance: MESNA
     Indication: CHEMOTHERAPY UROTHELIAL TOXICITY ATTENUATION
     Dosage: UNK
     Route: 041
     Dates: start: 20180808, end: 20180830

REACTIONS (2)
  - Petit mal epilepsy [Recovered/Resolved]
  - Generalised tonic-clonic seizure [Recovered/Resolved]

NARRATIVE: CASE EVENT DATE: 20180808
